FAERS Safety Report 9669061 (Version 1)
Quarter: 2013Q4

REPORT INFORMATION
  Report Type: Spontaneous
  Country: US (occurrence: US)
  Receive Date: 20131105
  Receipt Date: 20131105
  Transmission Date: 20140711
  Serious: No
  Sender: FDA-Public Use
  Company Number: US-PFIZER INC-2013314181

PATIENT
  Sex: Female

DRUGS (2)
  1. LYRICA [Suspect]
     Dosage: UNK
     Route: 048
     Dates: start: 201101
  2. LYRICA [Suspect]
     Dosage: 100 MG, 4X/DAY
     Route: 048
     Dates: start: 20131025

REACTIONS (5)
  - Drug intolerance [Unknown]
  - Dizziness [Unknown]
  - Sinusitis [Unknown]
  - Nasopharyngitis [Unknown]
  - Malaise [Unknown]
